FAERS Safety Report 14194329 (Version 1)
Quarter: 2017Q4

REPORT INFORMATION
  Report Type: Spontaneous
  Country: US (occurrence: US)
  Receive Date: 20171116
  Receipt Date: 20171116
  Transmission Date: 20180321
  Serious: No
  Sender: FDA-Public Use
  Company Number: US-PFIZER INC-2017489212

PATIENT
  Age: 58 Year
  Sex: Female

DRUGS (4)
  1. MEDROXYPROGESTERONE ACETATE. [Suspect]
     Active Substance: MEDROXYPROGESTERONE ACETATE
     Indication: HORMONE REPLACEMENT THERAPY
     Dosage: 2.5 MG, UNK
  2. CLIMARA [Suspect]
     Active Substance: ESTRADIOL
     Indication: BONE DENSITY DECREASED
  3. CLIMARA [Suspect]
     Active Substance: ESTRADIOL
     Indication: HORMONE REPLACEMENT THERAPY
     Dosage: 0.025 MG, UNK
  4. MEDROXYPROGESTERONE ACETATE. [Suspect]
     Active Substance: MEDROXYPROGESTERONE ACETATE
     Indication: BONE DENSITY DECREASED

REACTIONS (2)
  - Discomfort [Unknown]
  - Drug ineffective [Unknown]
